FAERS Safety Report 23068124 (Version 5)
Quarter: 2023Q4

REPORT INFORMATION
  Report Type: Report from Study
  Country: US (occurrence: US)
  Receive Date: 20231016
  Receipt Date: 20231229
  Transmission Date: 20240109
  Serious: Yes (Other)
  Sender: FDA-Public Use
  Company Number: US-BAYER-2023A137174

PATIENT
  Age: 45 Year
  Sex: Female
  Weight: 48.073 kg

DRUGS (22)
  1. ADEMPAS [Suspect]
     Active Substance: RIOCIGUAT
     Indication: Pulmonary arterial hypertension
     Dosage: UNK
     Dates: start: 20220614
  2. ADEMPAS [Suspect]
     Active Substance: RIOCIGUAT
     Indication: Pulmonary arterial hypertension
     Dosage: 2.5 MG, TID
     Route: 048
  3. ADEMPAS [Suspect]
     Active Substance: RIOCIGUAT
     Indication: Pulmonary arterial hypertension
     Dosage: UNK
     Dates: start: 20231122
  4. ADEMPAS [Suspect]
     Active Substance: RIOCIGUAT
     Indication: Pulmonary arterial hypertension
     Dosage: 2.5 MG, TID
  5. UPTRAVI [Suspect]
     Active Substance: SELEXIPAG
     Indication: Pulmonary arterial hypertension
     Dosage: 400 MCG UNK
     Route: 048
  6. AMBRISENTAN [Concomitant]
     Active Substance: AMBRISENTAN
  7. WARFARIN [Concomitant]
     Active Substance: WARFARIN
  8. SUBOXONE [Concomitant]
     Active Substance: BUPRENORPHINE HYDROCHLORIDE\NALOXONE HYDROCHLORIDE
  9. ACETAMINOPHEN [Concomitant]
     Active Substance: ACETAMINOPHEN
  10. SODIUM [Concomitant]
     Active Substance: SODIUM
  11. TRELEGY ELLIPTA [Concomitant]
     Active Substance: FLUTICASONE FUROATE\UMECLIDINIUM BROMIDE\VILANTEROL TRIFENATATE
  12. GABAPENTIN [Concomitant]
     Active Substance: GABAPENTIN
  13. POTASSIUM CHLORIDE [Concomitant]
     Active Substance: POTASSIUM CHLORIDE
  14. ALBUTEROL SULFATE [Concomitant]
     Active Substance: ALBUTEROL SULFATE
  15. FAMOTIDINE [Concomitant]
     Active Substance: FAMOTIDINE
  16. PROMETHAZINE HYDROCHLORIDE [Concomitant]
     Active Substance: PROMETHAZINE HYDROCHLORIDE
  17. OXYGEN [Concomitant]
     Active Substance: OXYGEN
  18. AMITRIPTYLINE HYDROCHLORIDE [Concomitant]
     Active Substance: AMITRIPTYLINE HYDROCHLORIDE
  19. VARENICLINE TARTRATE [Concomitant]
     Active Substance: VARENICLINE TARTRATE
  20. TORSEMIDE [Concomitant]
     Active Substance: TORSEMIDE
  21. LORATADINE [Concomitant]
     Active Substance: LORATADINE
  22. VARENICLINE [Concomitant]
     Active Substance: VARENICLINE

REACTIONS (15)
  - Loss of consciousness [None]
  - Fluid retention [None]
  - Varicose vein [None]
  - Motion sickness [None]
  - Autoscopy [None]
  - Dry mouth [None]
  - Coating in mouth [None]
  - Malaise [None]
  - Nasopharyngitis [None]
  - Hypotension [Not Recovered/Not Resolved]
  - Headache [None]
  - Dizziness [Not Recovered/Not Resolved]
  - Vomiting [None]
  - Dizziness [None]
  - Dizziness [None]

NARRATIVE: CASE EVENT DATE: 20220101
